FAERS Safety Report 6231396-6 (Version None)
Quarter: 2009Q2

REPORT INFORMATION
  Report Type: 
  Country: None (occurrence: None)
  Receive Date: 20090616
  Receipt Date: 20090610
  Transmission Date: 20091009
  Serious: Yes (Hospitalization)
  Sender: FDA-Public Use
  Company Number: FR-WYE-G03826509

PATIENT
  Age: 32 Year
  Sex: Male

DRUGS (14)
  1. TAZOCILLINE [Suspect]
     Indication: OSTEOMYELITIS
     Route: 042
     Dates: start: 20090423, end: 20090509
  2. DOLIPRANE [Suspect]
     Dates: start: 20090414, end: 20090515
  3. TRAMADOL HCL [Suspect]
     Dosage: UNKNOWN
     Dates: start: 20090414, end: 20090515
  4. MORPHINE [Concomitant]
     Dosage: UNKNOWN
     Dates: start: 20090414
  5. LOVENOX [Concomitant]
     Dosage: UNKNOWN
     Dates: start: 20090414
  6. XYZAL [Concomitant]
     Dosage: UNKNOWN
     Dates: start: 20090514
  7. TARDYFERON [Concomitant]
     Dosage: UNKNOWN
     Dates: start: 20090503, end: 20090515
  8. DALACIN [Concomitant]
     Dosage: UNKNOWN
     Route: 048
     Dates: start: 20090513, end: 20090515
  9. RIFADIN [Concomitant]
     Dosage: UNKNOWN
     Route: 048
     Dates: start: 20090513, end: 20090515
  10. NEXIUM [Concomitant]
     Dosage: UNKNOWN
     Dates: start: 20090424
  11. ONDANSETRON HCL [Concomitant]
     Dosage: UNKNOWN
     Dates: start: 20090511
  12. ECONAZOLE NITRATE [Concomitant]
     Dosage: UNKNOWN
     Route: 061
     Dates: start: 20090511
  13. NEURONTIN [Suspect]
     Route: 048
     Dates: start: 20090417, end: 20090515
  14. KARDEGIC [Concomitant]
     Dosage: UNKNOWN
     Dates: start: 20090414

REACTIONS (8)
  - CHOLESTASIS [None]
  - CYTOLYTIC HEPATITIS [None]
  - EOSINOPHILIA [None]
  - FORMICATION [None]
  - INFUSION SITE PAIN [None]
  - OEDEMA [None]
  - PYREXIA [None]
  - RASH [None]
